FAERS Safety Report 18864704 (Version 1)
Quarter: 2021Q1

REPORT INFORMATION
  Report Type: Spontaneous
  Country: FR (occurrence: FR)
  Receive Date: 20210208
  Receipt Date: 20210208
  Transmission Date: 20210420
  Serious: Yes (Hospitalization, Other)
  Sender: FDA-Public Use
  Company Number: FR-MALLINCKRODT-T202100471

PATIENT
  Age: 68 Year
  Sex: Male
  Weight: 115 kg

DRUGS (7)
  1. OFIRMEV [Suspect]
     Active Substance: ACETAMINOPHEN
     Indication: ANAESTHESIA
     Dosage: 1 GRAM, QD
     Route: 042
     Dates: start: 20200924, end: 20200924
  2. ATRACURIUM HIKMA [Suspect]
     Active Substance: ATRACURIUM
     Indication: ANAESTHESIA
     Dosage: 35 MILLIGRAM, QD
     Route: 042
     Dates: start: 20200924, end: 20200924
  3. DEXAMETHASONE. [Suspect]
     Active Substance: DEXAMETHASONE
     Indication: SURGERY
     Dosage: UNK
     Route: 042
     Dates: start: 20200924, end: 20200924
  4. SUFENTANIL [Suspect]
     Active Substance: SUFENTANIL
     Indication: ANAESTHESIA
     Dosage: 15 MICROGRAM, QD
     Route: 042
     Dates: start: 20200924, end: 20200924
  5. NEOSTIGMINE RENAUDIN [Suspect]
     Active Substance: NEOSTIGMINE METHYLSULFATE
     Indication: SURGERY
     Dosage: 4.6 MILLIGRAM, QD
     Route: 042
     Dates: start: 20200924, end: 20200924
  6. PROPOFOL LIPURO [Suspect]
     Active Substance: PROPOFOL
     Indication: ANAESTHESIA
     Dosage: 300 MILLIGRAM, QD
     Route: 042
     Dates: start: 20200924, end: 20200924
  7. CONTRAMAL [Suspect]
     Active Substance: TRAMADOL HYDROCHLORIDE
     Indication: SURGERY
     Dosage: 1 DOSAGE FORM, QD
     Route: 042
     Dates: start: 20200924, end: 20200924

REACTIONS (6)
  - Skin swelling [Recovered/Resolved]
  - Urticaria [Recovered/Resolved]
  - Hypotension [Recovered/Resolved]
  - Pruritus [Recovered/Resolved]
  - Hypothermia [Recovered/Resolved]
  - Anaphylactic shock [Recovered/Resolved]
